FAERS Safety Report 12412183 (Version 2)
Quarter: 2016Q2

REPORT INFORMATION
  Report Type: Spontaneous
  Country: CH (occurrence: NL)
  Receive Date: 20160527
  Receipt Date: 20160609
  Transmission Date: 20160815
  Serious: Yes (Hospitalization)
  Sender: FDA-Public Use
  Company Number: CH-LPDUSPRD-20160445

PATIENT
  Age: 44 Year
  Sex: Male

DRUGS (1)
  1. FERINJECT [Suspect]
     Active Substance: FERRIC CARBOXYMALTOSE
     Dosage: DOSE UNKNOWN
     Route: 042

REACTIONS (5)
  - Hypophosphataemia [Recovered/Resolved]
  - Fracture [Unknown]
  - Bone pain [Recovered/Resolved]
  - Condition aggravated [Recovered/Resolved]
  - Osteomalacia [Unknown]
